FAERS Safety Report 11081682 (Version 1)
Quarter: 2015Q2

REPORT INFORMATION
  Report Type: Report from Study
  Country: CN (occurrence: None)
  Receive Date: 20150429
  Receipt Date: 20150429
  Transmission Date: 20150821
  Serious: Yes (Hospitalization)
  Sender: FDA-Public Use
  Company Number: 8022762

PATIENT
  Age: 71 Year
  Sex: Male

DRUGS (9)
  1. PROSCAR [Concomitant]
     Active Substance: FINASTERIDE
  2. IODINE (131  I) [Concomitant]
     Active Substance: SODIUM IODIDE I-131
  3. ISOSORBIDE MONONITRATE (ISOSORBIDE MONOITRATE) [Concomitant]
  4. VITAMIN B (VITAMIN B COMPLEX) (VITAMIN B COMPLEX) [Concomitant]
  5. THYROZOL (THIAMAZOLE) (THIAMAZOLE) [Suspect]
     Active Substance: METHIMAZOLE
     Indication: HYPERTHYROIDISM
     Route: 048
     Dates: start: 1996
  6. EUTHYROX 50 MCG (LEVOTHYROXINE SODIUM) (TABLET) (LEVOTHYROXINE SODIUM) [Suspect]
     Active Substance: LEVOTHYROXINE SODIUM
     Indication: AUTOIMMUNE THYROIDITIS
     Route: 048
     Dates: start: 2010, end: 2010
  7. EUTHYROX 50 MCG (LEVOTHYROXINE SODIUM) (TABLET) (LEVOTHYROXINE SODIUM) [Suspect]
     Active Substance: LEVOTHYROXINE SODIUM
     Indication: HYPOTHYROIDISM
     Route: 048
     Dates: start: 2010, end: 2010
  8. TERAZOSIN HYDROCHLORIDE (TERAZOSIN HYDROCHLORIDE) [Concomitant]
  9. CALCIUM CARBONATE. [Concomitant]
     Active Substance: CALCIUM CARBONATE

REACTIONS (9)
  - Apathy [None]
  - Hepatic function abnormal [None]
  - Dizziness [None]
  - Irritability [None]
  - Memory impairment [None]
  - Blood thyroid stimulating hormone increased [None]
  - Hyperthyroidism [None]
  - Hyperhidrosis [None]
  - Disease recurrence [None]

NARRATIVE: CASE EVENT DATE: 201206
